FAERS Safety Report 7823142 (Version 3)
Quarter: 2014Q2

REPORT INFORMATION
  Report Type: Spontaneous
  Country: US (occurrence: US)
  Receive Date: 20110223
  Receipt Date: 20140618
  Transmission Date: 20141212
  Serious: Yes (Other)
  Sender: FDA-Public Use
  Company Number: US-ROCHE-735748

PATIENT
  Age: 16 Year
  Sex: Male
  Weight: 65.3 kg

DRUGS (3)
  1. ACCUTANE [Suspect]
     Indication: ACNE
     Route: 065
     Dates: start: 19951106, end: 19960331
  2. ALBUTEROL [Concomitant]
     Dosage: EVERY FEB FOR 1-2 WEEKS.
     Route: 065
     Dates: start: 1989, end: 1997
  3. GUAIFENESIN [Concomitant]
     Dosage: EVERY FEB 1-2 WEEKS
     Route: 065
     Dates: start: 1989, end: 1997

REACTIONS (7)
  - Crohn^s disease [Unknown]
  - Gastrointestinal injury [Unknown]
  - Colitis ulcerative [Unknown]
  - Anxiety [Unknown]
  - Inflammatory bowel disease [Unknown]
  - Dry skin [Unknown]
  - Irritable bowel syndrome [Unknown]
